FAERS Safety Report 14255336 (Version 1)
Quarter: 2017Q4

REPORT INFORMATION
  Report Type: Spontaneous
  Country: FR (occurrence: FR)
  Receive Date: 20171206
  Receipt Date: 20171206
  Transmission Date: 20180321
  Serious: Yes (Life-Threatening)
  Sender: FDA-Public Use
  Company Number: FR-GLAXOSMITHKLINE-FR2017185890

PATIENT
  Age: 28 Year
  Sex: Male

DRUGS (10)
  1. PENTOXYPHYLLIN [Concomitant]
     Indication: ERYTHEMA MULTIFORME
     Dosage: UNK
     Route: 065
  2. AZATHIOPRINE. [Concomitant]
     Active Substance: AZATHIOPRINE
     Indication: ERYTHEMA MULTIFORME
     Dosage: UNK
     Route: 065
  3. CYCLOSPORINE. [Concomitant]
     Active Substance: CYCLOSPORINE
     Indication: ERYTHEMA MULTIFORME
     Dosage: UNK
     Route: 065
  4. COLCHICINE. [Concomitant]
     Active Substance: COLCHICINE
     Indication: ERYTHEMA MULTIFORME
     Dosage: UNK
     Route: 065
  5. PREDNISONE. [Concomitant]
     Active Substance: PREDNISONE
     Indication: DERMATITIS
  6. PREDNISONE. [Concomitant]
     Active Substance: PREDNISONE
     Indication: ERYTHEMA MULTIFORME
     Dosage: 150 MG, UNK
     Route: 065
  7. DAPSONE. [Concomitant]
     Active Substance: DAPSONE
     Indication: ERYTHEMA MULTIFORME
     Dosage: UNK
     Route: 065
  8. VALACICLOVIR [Suspect]
     Active Substance: VALACYCLOVIR HYDROCHLORIDE
     Indication: ERYTHEMA MULTIFORME
  9. VALACICLOVIR [Suspect]
     Active Substance: VALACYCLOVIR HYDROCHLORIDE
     Indication: ANTIVIRAL TREATMENT
     Dosage: UNK
     Route: 065
  10. THALIDOMIDE [Concomitant]
     Active Substance: THALIDOMIDE
     Indication: ERYTHEMA MULTIFORME
     Dosage: UNK
     Route: 065

REACTIONS (1)
  - Treatment failure [Unknown]
